FAERS Safety Report 25255932 (Version 1)
Quarter: 2025Q2

REPORT INFORMATION
  Report Type: Spontaneous
  Country: US (occurrence: US)
  Receive Date: 20250430
  Receipt Date: 20250430
  Transmission Date: 20250716
  Serious: Yes (Death)
  Sender: MERCK SHARP & DOHME LLC
  Company Number: US-009507513-2281397

PATIENT
  Sex: Male

DRUGS (1)
  1. VERQUVO [Suspect]
     Active Substance: VERICIGUAT
     Dosage: 1 TABLET DAILY WITH FOOD
     Route: 048

REACTIONS (4)
  - Cardiac failure chronic [Fatal]
  - Palliative care [Unknown]
  - Therapy cessation [Unknown]
  - Hypophagia [Unknown]

NARRATIVE: CASE EVENT DATE: 20250401
